FAERS Safety Report 9445737 (Version 3)
Quarter: 2013Q3

REPORT INFORMATION
  Report Type: Report from Study
  Country: AU (occurrence: AU)
  Receive Date: 20130807
  Receipt Date: 20130925
  Transmission Date: 20140515
  Serious: Yes (Hospitalization, Other)
  Sender: FDA-Public Use
  Company Number: AU-BRISTOL-MYERS SQUIBB COMPANY-19159557

PATIENT
  Age: 76 Year
  Sex: Female
  Weight: 69 kg

DRUGS (9)
  1. ORENCIA [Suspect]
     Indication: RHEUMATOID ARTHRITIS
     Dosage: IV INFUSIONS ON 12/06/13, 26/06/13 AND 10/07/13
     Route: 042
     Dates: start: 20130612, end: 20130710
  2. FOLIC ACID [Concomitant]
  3. METHOTREXATE [Concomitant]
  4. PREDNISONE [Concomitant]
  5. COVERSYL [Concomitant]
  6. DIABEX [Concomitant]
  7. LANTUS [Concomitant]
  8. MICARDIS [Concomitant]
  9. LASIX [Concomitant]

REACTIONS (7)
  - Pneumonia [Recovering/Resolving]
  - Metastases to liver [Unknown]
  - Nausea [Unknown]
  - Vomiting [Unknown]
  - Fatigue [Unknown]
  - Blood glucose increased [Unknown]
  - Musculoskeletal chest pain [Not Recovered/Not Resolved]
